FAERS Safety Report 9575279 (Version 1)
Quarter: 2013Q4

REPORT INFORMATION
  Report Type: Report from Study
  Country: None (occurrence: US)
  Receive Date: 20131001
  Receipt Date: 20131001
  Transmission Date: 20140711
  Serious: Yes (Death)
  Sender: FDA-Public Use
  Company Number: US-TAKEDA-2013TUS001070

PATIENT
  Sex: 0

DRUGS (1)
  1. COLCRYS [Suspect]
     Indication: GOUT
     Dosage: 1 TABLET TWICE DAILY

REACTIONS (1)
  - Death [Fatal]
